FAERS Safety Report 24581997 (Version 2)
Quarter: 2024Q4

REPORT INFORMATION
  Report Type: Spontaneous
  Country: US (occurrence: US)
  Receive Date: 20241105
  Receipt Date: 20241206
  Transmission Date: 20250115
  Serious: No
  Sender: NEUROCRINE BIOSCIENCES
  Company Number: US-NEUROCRINE BIOSCIENCES INC.-2024NBI10685

PATIENT

DRUGS (5)
  1. INGREZZA [Suspect]
     Active Substance: VALBENAZINE
     Indication: Tardive dyskinesia
     Dosage: 40 MILLIGRAM, QD
     Route: 065
     Dates: start: 20231030, end: 20231124
  2. INGREZZA [Suspect]
     Active Substance: VALBENAZINE
     Indication: Extrapyramidal disorder
  3. GEODON [Concomitant]
     Active Substance: ZIPRASIDONE HYDROCHLORIDE\ZIPRASIDONE MESYLATE
     Indication: Bipolar disorder
     Dosage: 120 MILLIGRAM
     Route: 048
     Dates: start: 200401
  4. HYDROXYZINE [Concomitant]
     Active Substance: HYDROXYZINE HYDROCHLORIDE
     Indication: Anxiety
     Dosage: 100 UNK, QD
     Route: 048
     Dates: start: 202309
  5. RITALIN [Concomitant]
     Active Substance: METHYLPHENIDATE HYDROCHLORIDE
     Indication: Attention deficit hyperactivity disorder
     Dosage: 10 MILLIGRAM, QD
     Route: 048
     Dates: start: 200401

REACTIONS (3)
  - Dry eye [Unknown]
  - Dry mouth [Unknown]
  - Off label use [Unknown]
